FAERS Safety Report 24825954 (Version 1)
Quarter: 2025Q1

REPORT INFORMATION
  Report Type: Spontaneous
  Country: US (occurrence: US)
  Receive Date: 20250109
  Receipt Date: 20250109
  Transmission Date: 20250408
  Serious: Yes (Hospitalization, Other)
  Sender: AMGEN
  Company Number: US-AMGEN-USASP2024257285

PATIENT
  Age: 54 Year
  Sex: Female

DRUGS (3)
  1. INFLIXIMAB [Suspect]
     Active Substance: INFLIXIMAB
     Indication: Psoriatic arthropathy
     Route: 065
  2. IXEKIZUMAB [Concomitant]
     Active Substance: IXEKIZUMAB
  3. METHYLPREDNISOLONE [Concomitant]
     Active Substance: METHYLPREDNISOLONE
     Route: 040

REACTIONS (6)
  - Crohn^s disease [Unknown]
  - Wound dehiscence [Unknown]
  - Immunosuppression [Unknown]
  - Abdominal abscess [Unknown]
  - Intestinal perforation [Unknown]
  - Malnutrition [Unknown]
